FAERS Safety Report 11922034 (Version 2)
Quarter: 2016Q1

REPORT INFORMATION
  Report Type: Report from Study
  Country: US (occurrence: US)
  Receive Date: 20160115
  Receipt Date: 20160127
  Transmission Date: 20160526
  Serious: Yes (Hospitalization)
  Sender: FDA-Public Use
  Company Number: US-GILEAD-2016-0191910

PATIENT
  Age: 63 Year
  Sex: Male

DRUGS (20)
  1. MEGACE ES [Concomitant]
     Active Substance: MEGESTROL ACETATE
  2. POLYETHYLENE GLYCOL [Concomitant]
     Active Substance: POLYETHYLENE GLYCOLS
  3. ACYCLOVIR                          /00587301/ [Concomitant]
     Active Substance: ACYCLOVIR
  4. FLOMAX [Concomitant]
     Active Substance: TAMSULOSIN HYDROCHLORIDE
  5. ZYPREXA [Concomitant]
     Active Substance: OLANZAPINE
  6. EFAVIRENZ/EMTRICITABINE/TENOFOVIR DISOPROXIL FUMARATE [Suspect]
     Active Substance: EFAVIRENZ\EMTRICITABINE\TENOFOVIR DISOPROXIL FUMARATE
     Indication: HIV INFECTION
     Dosage: 1100 MG, UNK
     Route: 048
     Dates: start: 20150501
  7. FLUCONAZOLE. [Concomitant]
     Active Substance: FLUCONAZOLE
  8. CALCIUM CARBONATE. [Concomitant]
     Active Substance: CALCIUM CARBONATE
  9. XARELTO [Concomitant]
     Active Substance: RIVAROXABAN
  10. CIPRO XL [Concomitant]
     Active Substance: CIPROFLOXACIN\CIPROFLOXACIN HYDROCHLORIDE
  11. LOPRESSOR [Concomitant]
     Active Substance: METOPROLOL TARTRATE
  12. SULFAMETHOXAZOLE [Concomitant]
     Active Substance: SULFAMETHOXAZOLE
  13. XANAX [Concomitant]
     Active Substance: ALPRAZOLAM
  14. DIPHENHYDRAMINE. [Concomitant]
     Active Substance: DIPHENHYDRAMINE
  15. EMTRICITABINE [Concomitant]
     Active Substance: EMTRICITABINE
  16. PANTOPRAZOLE SODIUM. [Concomitant]
     Active Substance: PANTOPRAZOLE SODIUM
  17. VENLAFAXINE [Concomitant]
     Active Substance: VENLAFAXINE HYDROCHLORIDE
  18. BACTRIM [Concomitant]
     Active Substance: SULFAMETHOXAZOLE\TRIMETHOPRIM
  19. LORATADINE. [Concomitant]
     Active Substance: LORATADINE
  20. EFAVIRENZ [Concomitant]
     Active Substance: EFAVIRENZ

REACTIONS (9)
  - Vomiting [Unknown]
  - Dysphagia [Unknown]
  - Viral infection [Unknown]
  - Candida infection [Unknown]
  - Oral fungal infection [Unknown]
  - Pyrexia [Unknown]
  - Arthralgia [Unknown]
  - Oesophagitis [Unknown]
  - Nausea [Unknown]

NARRATIVE: CASE EVENT DATE: 2015
